FAERS Safety Report 7345106-2 (Version None)
Quarter: 2011Q1

REPORT INFORMATION
  Report Type: 
  Country: None (occurrence: None)
  Receive Date: 20110310
  Receipt Date: 20110302
  Transmission Date: 20110831
  Serious: Yes (Disabling)
  Sender: FDA-Public Use
  Company Number: GB-BAXTER-2011BH005578

PATIENT
  Age: 57 Year
  Sex: Female
  Weight: 74 kg

DRUGS (25)
  1. SODIUM CHLORIDE 0.9% IN PLASTIC CONTAINER [Suspect]
     Route: 042
     Dates: start: 20110216, end: 20110216
  2. PACLITAXEL [Suspect]
     Route: 042
     Dates: start: 20110112, end: 20110112
  3. SODIUM CHLORIDE 0.9% IN PLASTIC CONTAINER [Suspect]
     Route: 042
     Dates: start: 20110119, end: 20110119
  4. PACLITAXEL [Suspect]
     Route: 042
     Dates: start: 20110126, end: 20110126
  5. SODIUM CHLORIDE 0.9% IN PLASTIC CONTAINER [Suspect]
     Indication: BREAST CANCER
     Route: 042
     Dates: start: 20101229, end: 20101229
  6. SODIUM CHLORIDE 0.9% IN PLASTIC CONTAINER [Suspect]
     Route: 042
  7. PACLITAXEL [Suspect]
     Indication: BREAST CANCER
     Route: 042
     Dates: start: 20101229, end: 20101229
  8. PACLITAXEL [Suspect]
     Route: 042
     Dates: start: 20110209, end: 20110209
  9. SODIUM CHLORIDE 0.9% IN PLASTIC CONTAINER [Suspect]
     Route: 042
     Dates: start: 20110105, end: 20110105
  10. SODIUM CHLORIDE 0.9% IN PLASTIC CONTAINER [Suspect]
     Route: 042
     Dates: start: 20110202, end: 20110202
  11. SODIUM CHLORIDE 0.9% IN PLASTIC CONTAINER [Suspect]
     Route: 042
     Dates: start: 20110209, end: 20110209
  12. PACLITAXEL [Suspect]
     Route: 042
     Dates: start: 20110201
  13. PACLITAXEL [Suspect]
     Route: 042
     Dates: start: 20110202, end: 20110202
  14. PACLITAXEL [Suspect]
     Route: 042
     Dates: start: 20110216, end: 20110216
  15. ALOXI [Suspect]
     Indication: PRODUCT USED FOR UNKNOWN INDICATION
     Route: 042
     Dates: start: 20101229
  16. CHLORPHENAMINE [Suspect]
     Indication: PRODUCT USED FOR UNKNOWN INDICATION
     Route: 042
     Dates: start: 20101229
  17. RANITIDINE [Suspect]
     Indication: PRODUCT USED FOR UNKNOWN INDICATION
     Route: 042
     Dates: start: 20101229
  18. SODIUM CHLORIDE 0.9% IN PLASTIC CONTAINER [Suspect]
     Route: 042
     Dates: start: 20110126, end: 20110126
  19. SODIUM CHLORIDE 0.9% IN PLASTIC CONTAINER [Suspect]
     Indication: PRODUCT USED FOR UNKNOWN INDICATION
     Route: 042
     Dates: start: 20101229
  20. PACLITAXEL [Suspect]
     Route: 042
     Dates: start: 20110105, end: 20110105
  21. PACLITAXEL [Suspect]
     Route: 042
     Dates: start: 20110119, end: 20110119
  22. PACLITAXEL [Suspect]
     Route: 042
     Dates: start: 20110222, end: 20110222
  23. DEXAMETHASONE [Suspect]
     Indication: PRODUCT USED FOR UNKNOWN INDICATION
     Route: 042
     Dates: start: 20101229
  24. SODIUM CHLORIDE 0.9% IN PLASTIC CONTAINER [Suspect]
     Route: 042
     Dates: start: 20110112, end: 20110112
  25. SODIUM CHLORIDE 0.9% IN PLASTIC CONTAINER [Suspect]
     Route: 042
     Dates: start: 20110222, end: 20110222

REACTIONS (1)
  - NEUROPATHY PERIPHERAL [None]
